FAERS Safety Report 8404321-7 (Version None)
Quarter: 2012Q2

REPORT INFORMATION
  Report Type: 
  Country: None (occurrence: None)
  Receive Date: 20120601
  Receipt Date: 20120525
  Transmission Date: 20120825
  Serious: Yes (Congenital Anomaly, Other)
  Sender: FDA-Public Use
  Company Number: US-PFIZER INC-2012128666

PATIENT
  Sex: Female
  Weight: 2.74 kg

DRUGS (5)
  1. SERTRALINE [Concomitant]
     Dosage: 50 MG, 1X/DAY
     Route: 064
  2. MULTI-VITAMINS [Concomitant]
     Dosage: UNK
     Route: 064
     Dates: start: 20080324
  3. ZYRTEC [Concomitant]
     Dosage: UNK
     Route: 064
  4. ZOLOFT [Suspect]
     Indication: DEPRESSION
  5. ZOLOFT [Suspect]
     Indication: ANXIETY
     Dosage: UNK
     Route: 064
     Dates: start: 20060124

REACTIONS (3)
  - TALIPES [None]
  - MATERNAL EXPOSURE TIMING UNSPECIFIED [None]
  - PREMATURE BABY [None]
